FAERS Safety Report 5285545-7 (Version None)
Quarter: 2007Q1

REPORT INFORMATION
  Report Type: 
  Country: None (occurrence: None)
  Receive Date: 20061220
  Receipt Date: 20060127
  Transmission Date: 20070707
  Serious: Yes (Other)
  Sender: FDA-Public Use
  Company Number: 434251

PATIENT
  Age: 44 Year
  Sex: Female

DRUGS (4)
  1. TAMIFLU [Suspect]
     Indication: ANTIVIRAL PROPHYLAXIS
     Dosage: ORAL
     Route: 048
     Dates: start: 20060113, end: 20060120
  2. SYNTHROID [Concomitant]
  3. ARMOUR THYROID (LEVOTHYROXINE/LIOTHYRONINE [Concomitant]
  4. HYDROCHLOROTHIAZIDE [Concomitant]

REACTIONS (1)
  - HYPERSENSITIVITY [None]
